FAERS Safety Report 10512241 (Version 1)
Quarter: 2014Q3

REPORT INFORMATION
  Report Type: Spontaneous
  Country: US (occurrence: None)
  Receive Date: 20140926
  Receipt Date: 20140926
  Transmission Date: 20150326
  Serious: No
  Sender: FDA-Public Use
  Company Number: 1000070054

PATIENT
  Age: 63 Year
  Sex: Female

DRUGS (3)
  1. SUDAFED [Concomitant]
     Active Substance: PSEUDOEPHEDRINE HYDROCHLORIDE
  2. LINZESS [Suspect]
     Active Substance: LINACLOTIDE
     Indication: CONSTIPATION
     Route: 048
     Dates: start: 20140816, end: 20140817
  3. DIAZEPAM. [Concomitant]
     Active Substance: DIAZEPAM

REACTIONS (5)
  - Abdominal distension [None]
  - Dizziness [None]
  - Headache [None]
  - Intentional product misuse [None]
  - Inflammation [None]

NARRATIVE: CASE EVENT DATE: 201408
